FAERS Safety Report 5909237-3 (Version None)
Quarter: 2008Q4

REPORT INFORMATION
  Report Type: 
  Country: None (occurrence: None)
  Receive Date: 20081006
  Receipt Date: 20080930
  Transmission Date: 20090506
  Serious: Yes (Life-Threatening, Other)
  Sender: FDA-Public Use
  Company Number: PHHY2008JP18643

PATIENT
  Sex: Male
  Weight: 57 kg

DRUGS (13)
  1. DIOVAN [Suspect]
     Indication: HYPERTENSION
     Dosage: 80 MG DAILY
     Route: 048
     Dates: start: 20080816, end: 20080816
  2. MAGMITT KENEI [Concomitant]
     Dosage: 660 MG, UNK
     Route: 048
  3. EXCEGRAN [Concomitant]
     Indication: EPILEPSY
     Dosage: 1.5 G, UNK
     Route: 048
  4. EC DOPARL [Concomitant]
     Indication: PARKINSONISM
     Dosage: 3 DF
     Route: 048
  5. MEXILETINE HYDROCHLORIDE [Concomitant]
     Dosage: 300 MG, UNK
     Route: 048
  6. PLETAL [Concomitant]
     Indication: CEREBRAL INFARCTION
     Dosage: 2 DF, UNK
     Route: 048
  7. SYMMETREL [Concomitant]
     Indication: PARKINSONISM
     Dosage: 200 MG, UNK
     Route: 048
  8. ASPIRIN [Concomitant]
     Indication: CEREBRAL INFARCTION
     Dosage: 1 DF, UNK
     Route: 048
  9. LANSOPRAZOLE [Concomitant]
     Indication: GASTRIC ULCER
     Dosage: 30 MG, UNK
     Route: 048
  10. LIPITOR [Concomitant]
     Indication: HYPERLIPIDAEMIA
     Dosage: 10 MG, UNK
     Route: 048
  11. FRANDOL [Concomitant]
     Dosage: 40 MG, TID
     Route: 062
  12. FLUMARIN [Concomitant]
     Dosage: 1 G, BID
  13. PRIDOL [Concomitant]
     Dosage: 250 MG, UNK

REACTIONS (10)
  - BLOOD CREATININE INCREASED [None]
  - BLOOD PRESSURE DECREASED [None]
  - BLOOD UREA INCREASED [None]
  - GASTROINTESTINAL TUBE INSERTION [None]
  - HYPERVENTILATION [None]
  - LYMPHOCYTE COUNT DECREASED [None]
  - NEUTROPHIL COUNT INCREASED [None]
  - OXYGEN SATURATION DECREASED [None]
  - SHOCK [None]
  - WHITE BLOOD CELL COUNT INCREASED [None]
